FAERS Safety Report 8579507-1 (Version None)
Quarter: 2012Q3

REPORT INFORMATION
  Report Type: 
  Country: None (occurrence: None)
  Receive Date: 20120808
  Receipt Date: 20120801
  Transmission Date: 20120928
  Serious: Yes (Disabling)
  Sender: FDA-Public Use
  Company Number: GB-GLAXOSMITHKLINE-B0819661A

PATIENT
  Age: 70 Year
  Sex: Female
  Weight: 70 kg

DRUGS (11)
  1. FOLIC ACID [Concomitant]
     Route: 048
     Dates: start: 20080807
  2. RANITIDINE [Suspect]
     Indication: DYSPEPSIA
     Dosage: 300MG PER DAY
     Route: 048
     Dates: start: 20110916, end: 20120530
  3. CALCICHEW D3 [Concomitant]
     Indication: OSTEOPOROSIS
     Route: 048
     Dates: start: 20090223
  4. ALENDRONATE SODIUM [Concomitant]
     Indication: OSTEOPOROSIS
     Route: 048
     Dates: start: 20090223
  5. ASPIRIN [Concomitant]
     Indication: CARDIAC DISORDER
     Route: 048
     Dates: start: 20110225
  6. RAMIPRIL [Concomitant]
     Indication: CARDIAC DISORDER
     Route: 048
     Dates: start: 20110401
  7. ZAPAIN [Concomitant]
     Indication: PAIN
     Dosage: 8IUAX PER DAY
     Route: 048
     Dates: start: 20100628
  8. METOCLOPRAMIDE [Concomitant]
     Dosage: 30MG PER DAY
     Dates: start: 20090303, end: 20120523
  9. ROSUVASTATIN [Concomitant]
     Indication: CARDIAC DISORDER
     Dosage: 10MG PER DAY
     Dates: start: 20110503
  10. ADCAL-D3 [Concomitant]
     Indication: OSTEOPOROSIS
  11. BISOPROLOL FUMARATE [Concomitant]
     Indication: CARDIAC DISORDER
     Dosage: 1.25MG PER DAY
     Route: 048
     Dates: start: 20110401

REACTIONS (3)
  - DEPRESSION [None]
  - HALLUCINATION, VISUAL [None]
  - ANXIETY [None]
